FAERS Safety Report 9721559 (Version 1)
Quarter: 2013Q4

REPORT INFORMATION
  Report Type: Spontaneous
  Country: AU (occurrence: AU)
  Receive Date: 20131130
  Receipt Date: 20131130
  Transmission Date: 20140711
  Serious: Yes (Other)
  Sender: FDA-Public Use
  Company Number: PHHY2013AU138625

PATIENT
  Age: 50 Year
  Sex: Female

DRUGS (2)
  1. EVEROLIMUS [Suspect]
  2. EXEMESTANE [Concomitant]

REACTIONS (3)
  - Skin lesion [Unknown]
  - Rash macular [Unknown]
  - Stomatitis [Unknown]
